FAERS Safety Report 21905219 (Version 1)
Quarter: 2023Q1

REPORT INFORMATION
  Report Type: Report from Study
  Country: US (occurrence: US)
  Receive Date: 20230124
  Receipt Date: 20230124
  Transmission Date: 20230417
  Serious: Yes (Hospitalization)
  Sender: FDA-Public Use
  Company Number: US-ONCOBAY-2023-US-000002

PATIENT
  Age: 73 Year
  Sex: Male
  Weight: 78.7 kg

DRUGS (24)
  1. FLONASE ALLERGY RELIEF [Concomitant]
     Active Substance: FLUTICASONE PROPIONATE
     Route: 045
  2. FOLVITE [FOLIC ACID] [Concomitant]
     Route: 048
  3. LASIX FAIBLE [Concomitant]
     Indication: Blood ethanol normal
     Dosage: WHEN EDEMA RESOLVES, RESUME 20 MG DOSING
     Route: 048
  4. IMDUR [Concomitant]
     Active Substance: ISOSORBIDE MONONITRATE
     Route: 048
  5. NEURO MAG [Concomitant]
     Route: 048
  6. TOPROL XL [Concomitant]
     Active Substance: METOPROLOL SUCCINATE
     Route: 048
  7. SINGULAIR [Concomitant]
     Active Substance: MONTELUKAST SODIUM
     Route: 048
  8. PRALUENT [Concomitant]
     Active Substance: ALIROCUMAB
     Dosage: 150 MG/ML (RECEIVING 1ML)
     Route: 058
  9. VITAMIN B1 [Concomitant]
     Active Substance: THIAMINE HYDROCHLORIDE
     Route: 048
  10. SPIRIVA [Concomitant]
     Active Substance: TIOTROPIUM BROMIDE MONOHYDRATE
  11. ALBUTEROL SULFATE [Concomitant]
     Active Substance: ALBUTEROL SULFATE
     Indication: Wheezing
     Dosage: PRN
  12. NEURONTIN [Concomitant]
     Active Substance: GABAPENTIN
     Dosage: QAM
     Route: 048
  13. HUMALOG [Concomitant]
     Active Substance: INSULIN LISPRO
     Dosage: UP TO 30 UNITS/DAY
     Route: 058
  14. ZESTRIL [Concomitant]
     Active Substance: LISINOPRIL
     Route: 048
  15. SYNTHROID [Concomitant]
     Active Substance: LEVOTHYROXINE SODIUM
     Route: 048
  16. OKI-179 [Suspect]
     Active Substance: OKI-179
     Indication: Neoplasm
     Dosage: 4 DAYS ON/3 DAYS OFF
     Route: 048
     Dates: start: 20221208, end: 20230118
  17. BINIMETINIB [Suspect]
     Active Substance: BINIMETINIB
     Indication: Neoplasm
     Route: 048
     Dates: start: 20221208, end: 20230118
  18. ASPIRIN [Concomitant]
     Active Substance: ASPIRIN
     Route: 048
  19. BUDESONIDE [Concomitant]
     Active Substance: BUDESONIDE
  20. DURACEF [CEFADROXIL] [Concomitant]
     Route: 048
  21. VITAMIN D3 [Concomitant]
     Active Substance: CHOLECALCIFEROL
     Dosage: 1500 UNITS BY MOUTH ONCE/WEEK
     Route: 048
  22. DECADRON [Concomitant]
     Active Substance: DEXAMETHASONE
     Dosage: 2 TABS BY MOUTH DAILY. 8 MG MORNING BEFORE CHEMO, MORNING OF CHEMO AND 3 ADDITIONAL DAYS
     Route: 048
  23. COLACE [Concomitant]
     Active Substance: DOCUSATE SODIUM
     Route: 048
  24. ZETIA [Concomitant]
     Active Substance: EZETIMIBE
     Route: 048

REACTIONS (4)
  - Troponin T increased [Not Recovered/Not Resolved]
  - Muscular weakness [Not Recovered/Not Resolved]
  - Fatigue [Not Recovered/Not Resolved]
  - Dysphagia [Not Recovered/Not Resolved]

NARRATIVE: CASE EVENT DATE: 20230111
